FAERS Safety Report 18134175 (Version 1)
Quarter: 2020Q3

REPORT INFORMATION
  Report Type: Spontaneous
  Country: US (occurrence: US)
  Receive Date: 20200808
  Receipt Date: 20200808
  Transmission Date: 20201103
  Serious: No
  Sender: FDA-Public Use
  Company Number: None

PATIENT
  Age: 54 Year

DRUGS (1)
  1. TACROLIMUS CAP 1 MG [Suspect]
     Active Substance: TACROLIMUS
     Route: 048
     Dates: start: 201506

REACTIONS (6)
  - Hyperhidrosis [None]
  - Nausea [None]
  - Oedema [None]
  - Dizziness [None]
  - Tremor [None]
  - Loss of personal independence in daily activities [None]

NARRATIVE: CASE EVENT DATE: 20200808
